FAERS Safety Report 18668658 (Version 1)
Quarter: 2020Q4

REPORT INFORMATION
  Report Type: Spontaneous
  Country: US (occurrence: US)
  Receive Date: 20201226
  Receipt Date: 20201226
  Transmission Date: 20210114
  Serious: Yes (Other)
  Sender: FDA-Public Use
  Company Number: None

PATIENT
  Age: 42 Year
  Sex: Female
  Weight: 109.8 kg

DRUGS (5)
  1. DICYCLOMINE [Suspect]
     Active Substance: DICYCLOMINE HYDROCHLORIDE
     Indication: MUSCLE SPASMS
     Route: 048
     Dates: start: 20201221, end: 20201226
  2. VITAMIN B12 [Concomitant]
     Active Substance: CYANOCOBALAMIN
  3. AMPLIDIPINE [Concomitant]
  4. SPIRONOLACTON [Concomitant]
     Active Substance: SPIRONOLACTONE
  5. CLOZEPAM [Concomitant]

REACTIONS (3)
  - Pruritus [None]
  - Skin burning sensation [None]
  - Skin irritation [None]

NARRATIVE: CASE EVENT DATE: 20201226
